FAERS Safety Report 23139551 (Version 1)
Quarter: 2023Q4

REPORT INFORMATION
  Report Type: Spontaneous
  Country: US (occurrence: US)
  Receive Date: 20231102
  Receipt Date: 20231102
  Transmission Date: 20240110
  Serious: Yes (Hospitalization)
  Sender: FDA-Public Use
  Company Number: US-BRISTOL-MYERS SQUIBB COMPANY-2023-153366

PATIENT
  Age: 31 Year
  Sex: Male

DRUGS (1)
  1. SPRYCEL [Suspect]
     Active Substance: DASATINIB
     Indication: Chronic myeloid leukaemia
     Dosage: 1 TABLET BY MOUTH 1 TIME A DAY ON DAYS 8-21 AFTER CHEMOTHERAPY IS COMPLETE, THEN 1 TABLET DAILY THER
     Route: 048
     Dates: start: 202310

REACTIONS (4)
  - White blood cell count decreased [Unknown]
  - Red blood cell count decreased [Unknown]
  - Platelet count decreased [Unknown]
  - Off label use [Unknown]
